FAERS Safety Report 23282225 (Version 1)
Quarter: 2023Q4

REPORT INFORMATION
  Report Type: Spontaneous
  Country: US (occurrence: US)
  Receive Date: 20231211
  Receipt Date: 20231211
  Transmission Date: 20240110
  Serious: No
  Sender: FDA-Public Use
  Company Number: US-SANOFI-01860539

PATIENT
  Age: 34 Year
  Sex: Female

DRUGS (1)
  1. ADMELOG [Suspect]
     Active Substance: INSULIN LISPRO
     Indication: Gestational diabetes
     Dosage: UNK UNK, TID (6 UNITS FOR FIRST AND SECOND MEAL, 8 UNITS FOR THIRD MEAL )
     Dates: start: 202308

REACTIONS (1)
  - Maternal exposure during pregnancy [Unknown]
